FAERS Safety Report 15917757 (Version 1)
Quarter: 2019Q1

REPORT INFORMATION
  Report Type: Spontaneous
  Country: US (occurrence: US)
  Receive Date: 20190205
  Receipt Date: 20190205
  Transmission Date: 20190417
  Serious: No
  Sender: FDA-Public Use
  Company Number: US-PFIZER INC-2017120862

PATIENT
  Age: 9 Year
  Sex: Female

DRUGS (3)
  1. GENOTROPIN [Suspect]
     Active Substance: SOMATROPIN
     Indication: SHORT-BOWEL SYNDROME
     Dosage: 1.3 MG, UNK [5 DAYS A WEEK]
     Dates: start: 20170929
  2. SAIZEN [Concomitant]
     Active Substance: SOMATROPIN
     Dosage: 8.8 MG, DAILY
     Route: 058
  3. GENOTROPIN [Suspect]
     Active Substance: SOMATROPIN
     Indication: BODY HEIGHT BELOW NORMAL
     Dosage: 0.9 MG, DAILY
     Route: 058
     Dates: start: 201611

REACTIONS (9)
  - Back pain [Unknown]
  - Blood 25-hydroxycholecalciferol decreased [Unknown]
  - Insulin C-peptide decreased [Unknown]
  - Blood calcium decreased [Unknown]
  - Pain in extremity [Unknown]
  - Blood glucose decreased [Unknown]
  - Blood phosphorus decreased [Unknown]
  - Blood creatinine increased [Unknown]
  - Haemoglobin decreased [Unknown]

NARRATIVE: CASE EVENT DATE: 20161220
